FAERS Safety Report 24749904 (Version 1)
Quarter: 2024Q4

REPORT INFORMATION
  Report Type: Spontaneous
  Country: DE (occurrence: DE)
  Receive Date: 20241218
  Receipt Date: 20241218
  Transmission Date: 20250114
  Serious: Yes (Hospitalization)
  Sender: GE HEALTHCARE
  Company Number: DE-GE HEALTHCARE-2024CSU014606

PATIENT
  Age: 80 Year
  Sex: Male
  Weight: 82 kg

DRUGS (1)
  1. IOHEXOL [Suspect]
     Active Substance: IOHEXOL
     Indication: Computerised tomogram abdomen
     Dosage: 80 ML, TOTAL
     Route: 065
     Dates: start: 20241206, end: 20241206

REACTIONS (3)
  - Sneezing [Not Recovered/Not Resolved]
  - Face oedema [Not Recovered/Not Resolved]
  - Urticaria [Not Recovered/Not Resolved]

NARRATIVE: CASE EVENT DATE: 20241206
